FAERS Safety Report 15322673 (Version 1)
Quarter: 2018Q3

REPORT INFORMATION
  Report Type: Spontaneous
  Country: US (occurrence: US)
  Receive Date: 20180821
  Receipt Date: 20180821
  Transmission Date: 20181010
  Serious: No
  Sender: FDA-Public Use
  Company Number: None

PATIENT
  Age: 46 Year
  Sex: Female

DRUGS (1)
  1. XIFAXAN [Suspect]
     Active Substance: RIFAXIMIN
     Indication: IRRITABLE BOWEL SYNDROME
     Dosage: ?          QUANTITY:42;?
     Route: 048
     Dates: start: 20180813, end: 20180820

REACTIONS (1)
  - Urticaria [None]

NARRATIVE: CASE EVENT DATE: 20180821
